FAERS Safety Report 15841601 (Version 4)
Quarter: 2019Q2

REPORT INFORMATION
  Report Type: Report from Study
  Country: IL (occurrence: IL)
  Receive Date: 20190118
  Receipt Date: 20190408
  Transmission Date: 20190711
  Serious: Yes (Hospitalization)
  Sender: FDA-Public Use
  Company Number: IL-ROCHE-2238757

PATIENT
  Age: 69 Year
  Sex: Female
  Weight: 56.3 kg

DRUGS (10)
  1. ZANTAC [Concomitant]
     Active Substance: RANITIDINE HYDROCHLORIDE
     Route: 065
     Dates: start: 20181218
  2. PACLITAXEL. [Suspect]
     Active Substance: PACLITAXEL
     Indication: OVARIAN CANCER
     Dosage: DATE OF MOST RECENT DOSE (280 MG) OF PACLITAXEL PRIOR TO SAE ONSET: 18/DEC/2018
     Route: 042
     Dates: start: 20181218
  3. CALCIUM 600+D3 [Concomitant]
     Active Substance: CALCIUM CARBONATE\VITAMIN D
     Indication: OSTEOARTHRITIS
     Route: 065
     Dates: start: 2016
  4. LORATADIN [Concomitant]
     Active Substance: LORATADINE
     Route: 065
     Dates: start: 20181218
  5. CARBOPLATIN. [Suspect]
     Active Substance: CARBOPLATIN
     Indication: OVARIAN CANCER
     Dosage: CARBOPLATIN AT A DOSE TO ACHIEVE A TARGET AREA UNDER THE CURVE (AUC) OF 6 (MG/ML/MIN).?DATE OF MOST
     Route: 042
     Dates: start: 20181218
  6. DEXACORT (ISRAEL) [Concomitant]
     Route: 065
     Dates: start: 20181218
  7. BONDORMIN [Concomitant]
     Active Substance: BROTIZOLAM
     Indication: INSOMNIA
     Route: 065
     Dates: start: 20181120
  8. CARDILOC [Concomitant]
     Active Substance: BISOPROLOL FUMARATE
     Indication: SUPRAVENTRICULAR TACHYCARDIA
     Route: 065
     Dates: start: 201806
  9. PALONOSETRON. [Concomitant]
     Active Substance: PALONOSETRON HYDROCHLORIDE
     Route: 065
     Dates: start: 20181218
  10. ATEZOLIZUMAB. [Suspect]
     Active Substance: ATEZOLIZUMAB
     Indication: OVARIAN CANCER
     Dosage: DATE OF MOST RECENT DOSE OF ATEZOLIZUMAB PRIOR TO SAE ONSET: 18/DEC/2018
     Route: 042
     Dates: start: 20181218

REACTIONS (2)
  - Ovarian vein thrombosis [Unknown]
  - Systemic immune activation [Recovered/Resolved]

NARRATIVE: CASE EVENT DATE: 20181231
